FAERS Safety Report 10130062 (Version 1)
Quarter: 2014Q2

REPORT INFORMATION
  Report Type: Spontaneous
  Country: US (occurrence: None)
  Receive Date: 20140424
  Receipt Date: 20140424
  Transmission Date: 20141212
  Serious: No
  Sender: FDA-Public Use
  Company Number: None

PATIENT
  Age: 49 Year
  Sex: Male
  Weight: 97.3 kg

DRUGS (2)
  1. DIVALPROEX [Suspect]
     Indication: POST-TRAUMATIC STRESS DISORDER
     Route: 048
     Dates: start: 20130815, end: 20140421
  2. DIVALPROEX [Suspect]
     Indication: ANXIETY
     Route: 048
     Dates: start: 20130815, end: 20140421

REACTIONS (1)
  - Oedema peripheral [None]
